FAERS Safety Report 21952150 (Version 1)
Quarter: 2023Q1

REPORT INFORMATION
  Report Type: Spontaneous
  Country: US (occurrence: US)
  Receive Date: 20230203
  Receipt Date: 20230203
  Transmission Date: 20230418
  Serious: No
  Sender: FDA-Public Use
  Company Number: US-BRISTOL-MYERS SQUIBB COMPANY-2023-016660

PATIENT
  Age: 75 Year
  Sex: Female
  Weight: 94 kg

DRUGS (1)
  1. REVLIMID [Suspect]
     Active Substance: LENALIDOMIDE
     Indication: B-cell lymphoma
     Dosage: FREQUENCY: FOR 21 DAYS AND 7 DAYS OFF
     Route: 048
     Dates: start: 20211214

REACTIONS (4)
  - Fatigue [Unknown]
  - Hypoaesthesia [Unknown]
  - Alopecia [Unknown]
  - Off label use [Unknown]
